FAERS Safety Report 9476003 (Version 1)
Quarter: 2013Q3

REPORT INFORMATION
  Report Type: Spontaneous
  Country: GB (occurrence: None)
  Receive Date: 20130821
  Receipt Date: 20130821
  Transmission Date: 20140515
  Serious: Yes (Other)
  Sender: FDA-Public Use
  Company Number: 2013GMK006520

PATIENT
  Age: 67 Year
  Sex: Female
  Weight: 67 kg

DRUGS (7)
  1. GABAPENTIN (GABAPENTIN) [Suspect]
     Indication: PAIN
     Route: 048
     Dates: start: 20130711, end: 20130725
  2. ALENDRONIC ACID (ALENDRONIC ACID) [Concomitant]
  3. AMITRIPTYLINE (AMITRIPTYLINE) [Concomitant]
  4. LANSOPRAZOLE (LANSOPRAZOLE) [Concomitant]
  5. NAPROXEN (NAPROXEN) [Concomitant]
  6. SERTRALINE (SERTRALINE) [Concomitant]
  7. TRAMADOL HYDROCHLORIDE (TRAMADOL HYDROCHLORIDE) [Concomitant]

REACTIONS (2)
  - Mouth ulceration [None]
  - Pain [None]
